FAERS Safety Report 5601485-5 (Version None)
Quarter: 2008Q1

REPORT INFORMATION
  Report Type: 
  Country: None (occurrence: None)
  Receive Date: 20080124
  Receipt Date: 20080110
  Transmission Date: 20080703
  Serious: Yes (Hospitalization, Other)
  Sender: FDA-Public Use
  Company Number: HQWYE628723JUN05

PATIENT
  Sex: Female
  Weight: 51.6 kg

DRUGS (4)
  1. TACROLIMUS [Suspect]
     Indication: PROPHYLAXIS AGAINST TRANSPLANT REJECTION
     Route: 048
     Dates: start: 20050501
  2. MYCOPHENOLATE MOFETIL [Concomitant]
     Dosage: UNKNOWN
  3. CORTICOSTEROID NOS [Concomitant]
     Dosage: UNKNOWN
     Route: 048
  4. ZENAPAX [Concomitant]
     Dosage: UNKNOWN

REACTIONS (2)
  - ARTERIAL INJURY [None]
  - LYMPHOCELE [None]
